FAERS Safety Report 21172018 (Version 1)
Quarter: 2022Q3

REPORT INFORMATION
  Report Type: Report from Study
  Country: JP (occurrence: JP)
  Receive Date: 20220804
  Receipt Date: 20220804
  Transmission Date: 20221027
  Serious: Yes (Other)
  Sender: FDA-Public Use
  Company Number: JP-TAKEDA-2022TJP068083

PATIENT
  Age: 8 Decade
  Sex: Female

DRUGS (4)
  1. BRENTUXIMAB VEDOTIN [Suspect]
     Active Substance: BRENTUXIMAB VEDOTIN
     Indication: Peripheral T-cell lymphoma unspecified
     Dosage: 1.2 MILLIGRAM
     Route: 065
     Dates: start: 2021
  2. DOXORUBICIN HYDROCHLORIDE [Suspect]
     Active Substance: DOXORUBICIN HYDROCHLORIDE
     Indication: Peripheral T-cell lymphoma unspecified
     Dosage: UNK
     Route: 065
     Dates: start: 2021
  3. VINBLASTINE SULFATE [Suspect]
     Active Substance: VINBLASTINE SULFATE
     Indication: Peripheral T-cell lymphoma unspecified
     Dosage: UNK
     Route: 065
     Dates: start: 2021
  4. DACARBAZINE [Suspect]
     Active Substance: DACARBAZINE
     Indication: Peripheral T-cell lymphoma unspecified
     Dosage: UNK
     Route: 065
     Dates: start: 2021

REACTIONS (1)
  - Drug ineffective [Not Recovered/Not Resolved]

NARRATIVE: CASE EVENT DATE: 20210101
